FAERS Safety Report 8181607-5 (Version None)
Quarter: 2012Q1

REPORT INFORMATION
  Report Type: 
  Country: None (occurrence: None)
  Receive Date: 20120301
  Receipt Date: 20120301
  Transmission Date: 20120608
  Serious: Yes (Hospitalization)
  Sender: FDA-Public Use
  Company Number: None

PATIENT
  Sex: Female
  Weight: 60.9 kg

DRUGS (5)
  1. DILAUDID [Concomitant]
  2. TAXOL [Suspect]
     Dosage: 140 MG
     Dates: end: 20120131
  3. CARBOPLATIN [Suspect]
     Dosage: 551 MG
     Dates: end: 20120117
  4. ZOFRAN [Concomitant]
  5. PERCOCET [Concomitant]

REACTIONS (2)
  - VOMITING [None]
  - OBSTRUCTION [None]
